APPROVED DRUG PRODUCT: BUTALBITAL, ACETAMINOPHEN AND CAFFEINE
Active Ingredient: ACETAMINOPHEN; BUTALBITAL; CAFFEINE
Strength: 500MG;50MG;40MG
Dosage Form/Route: TABLET;ORAL
Application: A040883 | Product #001
Applicant: MIRROR PHARMACEUTICALS LLC
Approved: Dec 23, 2008 | RLD: No | RS: No | Type: DISCN